FAERS Safety Report 21898700 (Version 6)
Quarter: 2023Q2

REPORT INFORMATION
  Report Type: Report from Study
  Country: US (occurrence: US)
  Receive Date: 20230123
  Receipt Date: 20230405
  Transmission Date: 20230722
  Serious: No
  Sender: FDA-Public Use
  Company Number: US-AGIOS-2301US03239

PATIENT
  Sex: Male

DRUGS (2)
  1. MITAPIVAT [Suspect]
     Active Substance: MITAPIVAT
     Indication: Pyruvate kinase deficiency anaemia
     Dosage: 50 MILLIGRAM, BID
     Route: 048
     Dates: start: 20220923
  2. DEFEROXAMINE [Concomitant]
     Active Substance: DEFEROXAMINE MESYLATE
     Indication: Product used for unknown indication
     Dosage: UNK

REACTIONS (10)
  - Back pain [Unknown]
  - Pelvic pain [Unknown]
  - Drug ineffective [Unknown]
  - Accident [Unknown]
  - Muscle strain [Unknown]
  - Urine odour abnormal [Unknown]
  - Product dose omission issue [Unknown]
  - Haemoglobin abnormal [Unknown]
  - Blood iron increased [Unknown]
  - Back injury [Unknown]
